FAERS Safety Report 14156603 (Version 1)
Quarter: 2017Q4

REPORT INFORMATION
  Report Type: Report from Study
  Country: None (occurrence: GB)
  Receive Date: 20171103
  Receipt Date: 20171103
  Transmission Date: 20180321
  Serious: Yes (Death)
  Sender: FDA-Public Use
  Company Number: GB-ABBVIE-17K-167-2148583-00

PATIENT
  Age: 78 Year
  Sex: Male

DRUGS (1)
  1. HUMIRA [Suspect]
     Active Substance: ADALIMUMAB
     Indication: RHEUMATOID ARTHRITIS
     Route: 058
     Dates: start: 20070715, end: 20120809

REACTIONS (4)
  - Diffuse large B-cell lymphoma [Fatal]
  - Cerebrovascular accident [Fatal]
  - Pneumonia aspiration [Fatal]
  - Epilepsy [Fatal]

NARRATIVE: CASE EVENT DATE: 20150526
